FAERS Safety Report 12351676 (Version 6)
Quarter: 2020Q1

REPORT INFORMATION
  Report Type: Report from Study
  Country: GB (occurrence: US)
  Receive Date: 20160510
  Receipt Date: 20200309
  Transmission Date: 20200409
  Serious: Yes (Hospitalization, Other)
  Sender: FDA-Public Use
  Company Number: US-ASTELLAS-2016US016747

PATIENT
  Age: 66 Year
  Sex: Male

DRUGS (2)
  1. BEVACIZUMAB. [Suspect]
     Active Substance: BEVACIZUMAB
     Indication: NON-SMALL CELL LUNG CANCER
     Dosage: 1540 MG (15 MG/KG) EVERY 21 DAY, EVERY 3 WEEKS
     Route: 042
     Dates: end: 20160224
  2. ERLOTINIB [Suspect]
     Active Substance: ERLOTINIB
     Indication: NON-SMALL CELL LUNG CANCER
     Route: 048
     Dates: start: 20151102, end: 20160503

REACTIONS (18)
  - Malaise [Unknown]
  - Gastric ulcer [Unknown]
  - Embolism [Unknown]
  - Nausea [Unknown]
  - Small intestinal obstruction [Unknown]
  - Nausea [Unknown]
  - Acute kidney injury [Unknown]
  - Syncope [Unknown]
  - Productive cough [Unknown]
  - Oesophageal stenosis [Unknown]
  - Vomiting [Unknown]
  - Dyspnoea [Unknown]
  - Pain in extremity [Unknown]
  - Oesophageal ulcer [Unknown]
  - Nausea [Recovering/Resolving]
  - Vomiting [Unknown]
  - Pleural effusion [Unknown]
  - Duodenal stenosis [Unknown]

NARRATIVE: CASE EVENT DATE: 20151214
